FAERS Safety Report 5188804-1 (Version None)
Quarter: 2006Q4

REPORT INFORMATION
  Report Type: 
  Country: None (occurrence: None)
  Receive Date: 20061215
  Receipt Date: 20061205
  Transmission Date: 20070319
  Serious: Yes (Hospitalization)
  Sender: FDA-Public Use
  Company Number: 2006AL003792

PATIENT
  Age: 76 Year
  Sex: Male

DRUGS (10)
  1. CARBAMAZEPINE [Suspect]
     Indication: PARTIAL SEIZURES
     Dosage: 100 MG; BID; PO
     Route: 048
  2. ISOSORBIDE MONONITRATE [Concomitant]
  3. LISINOPRIL [Concomitant]
  4. FRUSEMIDE [Concomitant]
  5. SIMVASTATIN [Concomitant]
  6. ASPIRIN [Concomitant]
  7. AMLODIPINE [Concomitant]
  8. QUININE SULFATE [Concomitant]
  9. GLYCERYL TRINITRATE [Concomitant]
  10. PHENYTOIN SODIUM CAP [Concomitant]

REACTIONS (10)
  - ALANINE AMINOTRANSFERASE INCREASED [None]
  - BLOOD LACTATE DEHYDROGENASE INCREASED [None]
  - CARDIOMEGALY [None]
  - DRUG HYPERSENSITIVITY [None]
  - EPIDERMAL NECROSIS [None]
  - HYPERPLASIA [None]
  - LYMPHADENOPATHY [None]
  - PIGMENTATION DISORDER [None]
  - PLATELET COUNT DECREASED [None]
  - SKIN OEDEMA [None]
